FAERS Safety Report 12255548 (Version 1)
Quarter: 2016Q2

REPORT INFORMATION
  Report Type: Spontaneous
  Country: BR (occurrence: BR)
  Receive Date: 20160412
  Receipt Date: 20160412
  Transmission Date: 20160815
  Serious: Yes (Other)
  Sender: FDA-Public Use
  Company Number: BR-ACCORD-039531

PATIENT
  Age: 64 Year
  Sex: Female
  Weight: 57.2 kg

DRUGS (5)
  1. ONDANSETRON [Concomitant]
     Active Substance: ONDANSETRON
     Indication: PROPHYLAXIS
     Dosage: RECEIVED WITH SALINE FLUID 100ML AND DEXAMETHASONE 10 MG
     Route: 042
     Dates: start: 20160224, end: 20160224
  2. DEXAMETHASONE. [Concomitant]
     Active Substance: DEXAMETHASONE
     Indication: PROPHYLAXIS
     Dosage: RECEIVED WITH SALINE FLUID 100ML AND ONDANSETRON 08 MG
     Route: 042
     Dates: start: 20160224, end: 20160224
  3. PACLITAXEL/PACLITAXEL LIPOSOME [Suspect]
     Active Substance: PACLITAXEL
     Indication: OESOPHAGEAL CARCINOMA
     Dosage: RECEIVED CYCLE 01 ON 24-FEB-2016.
     Route: 042
     Dates: start: 20160224, end: 20160224
  4. RANITIDINE. [Concomitant]
     Active Substance: RANITIDINE
     Indication: PROPHYLAXIS
     Dosage: DOSE: 50MG/2ML-1 AMPOULE
     Route: 042
     Dates: start: 20160224, end: 20160224
  5. DIPHENHYDRAMINE. [Concomitant]
     Active Substance: DIPHENHYDRAMINE
     Indication: PROPHYLAXIS
     Dosage: DOSE: 1 AMPOULE??RECEIVED WITH SALINE FLUID 100 ML
     Route: 042
     Dates: start: 20160224, end: 20160224

REACTIONS (3)
  - Erythema [Recovered/Resolved]
  - Respiratory distress [Recovered/Resolved]
  - Off label use [Unknown]

NARRATIVE: CASE EVENT DATE: 20160224
